FAERS Safety Report 21663269 (Version 1)
Quarter: 2022Q4

REPORT INFORMATION
  Report Type: Spontaneous
  Country: US (occurrence: None)
  Receive Date: 20221129
  Receipt Date: 20221129
  Transmission Date: 20230113
  Serious: Yes (Hospitalization)
  Sender: FDA-Public Use
  Company Number: None

PATIENT
  Sex: Male

DRUGS (1)
  1. DEFERASIROX [Suspect]
     Active Substance: DEFERASIROX
     Dosage: OTHER QUANTITY : 360;?FREQUENCY : DAILY;?
     Route: 048

REACTIONS (4)
  - Dyspnoea [None]
  - Pulmonary oedema [None]
  - Intra-abdominal fluid collection [None]
  - Therapy interrupted [None]
